FAERS Safety Report 9519907 (Version 2)
Quarter: 2013Q3

REPORT INFORMATION
  Report Type: Spontaneous
  Country: US (occurrence: US)
  Receive Date: 20130912
  Receipt Date: 20130924
  Transmission Date: 20140515
  Serious: Yes (Hospitalization)
  Sender: FDA-Public Use
  Company Number: US-BAXTER-2013BAX035447

PATIENT
  Sex: Female

DRUGS (1)
  1. GAMMAGARD LIQUID [Suspect]
     Indication: HYPOGAMMAGLOBULINAEMIA
     Route: 042
     Dates: start: 201303, end: 20130829

REACTIONS (4)
  - Renal disorder [Recovering/Resolving]
  - Abdominal pain [Recovering/Resolving]
  - Liver function test abnormal [Recovering/Resolving]
  - Palpitations [Recovering/Resolving]
